FAERS Safety Report 8832139 (Version 3)
Quarter: 2013Q1

REPORT INFORMATION
  Report Type: Report from Study
  Country: FR (occurrence: FR)
  Receive Date: 20121009
  Receipt Date: 20130204
  Transmission Date: 20140127
  Serious: Yes (Death, Other)
  Sender: FDA-Public Use
  Company Number: FR-ROCHE-1139484

PATIENT
  Age: 85 Year
  Sex: Female

DRUGS (6)
  1. RANIBIZUMAB [Suspect]
     Indication: AGE-RELATED MACULAR DEGENERATION
     Route: 050
     Dates: start: 20080606
  2. RANIBIZUMAB [Suspect]
     Route: 050
     Dates: start: 20090330
  3. RANIBIZUMAB [Suspect]
     Route: 050
     Dates: start: 20090504
  4. BEVACIZUMAB [Concomitant]
     Route: 065
     Dates: start: 200903, end: 200910
  5. BEVACIZUMAB [Concomitant]
     Route: 065
     Dates: start: 201003, end: 201008
  6. BEVACIZUMAB [Concomitant]
     Route: 065
     Dates: end: 201103

REACTIONS (4)
  - Slipping rib syndrome [Fatal]
  - Glaucoma [Unknown]
  - Scotoma [Unknown]
  - Glaucoma [Unknown]
